FAERS Safety Report 4740941-9 (Version None)
Quarter: 2005Q3

REPORT INFORMATION
  Report Type: 
  Country: None (occurrence: None)
  Receive Date: 20050808
  Receipt Date: 20050725
  Transmission Date: 20060218
  Serious: Yes (Other)
  Sender: FDA-Public Use
  Company Number: 2005105805

PATIENT
  Age: 3 Month
  Sex: Female

DRUGS (1)
  1. ZANTAC [Suspect]
     Dosage: UNSPECIFIED AMOUNT 4 TIMES, ORAL
     Route: 048
     Dates: start: 20050723, end: 20050723

REACTIONS (3)
  - APNOEA [None]
  - CYANOSIS [None]
  - VOMITING [None]
